FAERS Safety Report 9096524 (Version 1)
Quarter: 2013Q1

REPORT INFORMATION
  Report Type: Other
  Country: JP (occurrence: JP)
  Receive Date: 20130211
  Receipt Date: 20130211
  Transmission Date: 20140127
  Serious: Yes (Hospitalization)
  Sender: FDA-Public Use
  Company Number: JP-ACTELION-A-CH2013-78849

PATIENT
  Age: 71 Year
  Sex: Female

DRUGS (1)
  1. TRACLEER [Suspect]
     Indication: SKIN ULCER
     Dosage: UNK MG, UNK
     Route: 048

REACTIONS (8)
  - Skin ulcer [Unknown]
  - Gangrene [Unknown]
  - Pain [Unknown]
  - Condition aggravated [Unknown]
  - Skin bacterial infection [Unknown]
  - Pseudomonas infection [Unknown]
  - Drug resistance [Unknown]
  - Enterococcal infection [Unknown]
